FAERS Safety Report 9743305 (Version 2)
Quarter: 2013Q4

REPORT INFORMATION
  Report Type: Spontaneous
  Country: US (occurrence: US)
  Receive Date: 20131210
  Receipt Date: 20131210
  Transmission Date: 20140711
  Serious: No
  Sender: FDA-Public Use
  Company Number: US-GILEAD-2009-0025508

PATIENT
  Age: 39 Year
  Sex: Female

DRUGS (5)
  1. LETAIRIS [Suspect]
     Indication: PULMONARY ARTERIAL HYPERTENSION
     Route: 048
     Dates: start: 20091109
  2. REVATIO [Concomitant]
  3. ZOLOFT [Concomitant]
  4. RAMIPRIL [Concomitant]
  5. YASMIN [Concomitant]

REACTIONS (5)
  - Stomatitis [Recovered/Resolved]
  - Mouth ulceration [Recovered/Resolved]
  - Oropharyngeal pain [Recovered/Resolved]
  - Gingival bleeding [Recovered/Resolved]
  - Hypersensitivity [Recovered/Resolved]
